FAERS Safety Report 15074792 (Version 1)
Quarter: 2018Q2

REPORT INFORMATION
  Report Type: Spontaneous
  Country: US (occurrence: US)
  Receive Date: 20180627
  Receipt Date: 20180627
  Transmission Date: 20180711
  Serious: Yes (Other)
  Sender: FDA-Public Use
  Company Number: US-SAOL THERAPEUTICS-2017SAO01362

PATIENT
  Age: 54 Year
  Sex: Male
  Weight: 106.58 kg

DRUGS (4)
  1. LIORESAL [Suspect]
     Active Substance: BACLOFEN
     Dosage: 967 ?G, \DAY - FLEX
     Route: 037
     Dates: end: 201708
  2. LIORESAL [Suspect]
     Active Substance: BACLOFEN
     Dosage: UNK
     Route: 037
  3. LIORESAL [Suspect]
     Active Substance: BACLOFEN
     Dosage: 300 ?G, \DAY
     Route: 037
     Dates: start: 201708, end: 20170822
  4. LIORESAL [Suspect]
     Active Substance: BACLOFEN
     Dosage: 200 ?G, \DAY
     Route: 037
     Dates: start: 20170822

REACTIONS (5)
  - Therapy non-responder [Recovered/Resolved]
  - Asthenia [Recovered/Resolved]
  - Complication associated with device [Recovered/Resolved]
  - Implant site extravasation [Recovered/Resolved]
  - Urinary retention [Recovered/Resolved]

NARRATIVE: CASE EVENT DATE: 20160821
